FAERS Safety Report 5421751-6 (Version None)
Quarter: 2007Q3

REPORT INFORMATION
  Report Type: 
  Country: None (occurrence: None)
  Receive Date: 20070821
  Receipt Date: 20070809
  Transmission Date: 20080115
  Serious: Yes (Other)
  Sender: FDA-Public Use
  Company Number: FR-PFIZER INC-2007066913

PATIENT
  Sex: Female

DRUGS (3)
  1. TRIFLUCAN [Suspect]
     Indication: VAGINAL CANDIDIASIS
     Dates: start: 20070806, end: 20070807
  2. AUGMENTIN '125' [Concomitant]
     Indication: VAGINAL CANDIDIASIS
  3. FAZOL [Concomitant]
     Indication: VAGINAL CANDIDIASIS

REACTIONS (2)
  - EYE BURNS [None]
  - SKIN EXFOLIATION [None]
